FAERS Safety Report 4578548-9 (Version None)
Quarter: 2005Q1

REPORT INFORMATION
  Report Type: 
  Country: None (occurrence: None)
  Receive Date: 20050211
  Receipt Date: 20050131
  Transmission Date: 20050727
  Serious: Yes (Other)
  Sender: FDA-Public Use
  Company Number: US-GLAXOSMITHKLINE-A0543040A

PATIENT
  Age: 82 Year
  Sex: Female
  Weight: 52.3 kg

DRUGS (3)
  1. SENSODYNE ORIGINAL FLAVOR TOOTHPASTE [Suspect]
     Indication: SENSITIVITY OF TEETH
     Dates: start: 19600101, end: 20041201
  2. SENSODYNE EXTRA WHITENING TOOTHPASTE [Concomitant]
     Indication: SENSITIVITY OF TEETH
     Dates: start: 20041201
  3. SYNTHROID [Concomitant]
     Indication: HYPOTHYROIDISM
     Route: 048

REACTIONS (4)
  - BLOOD CHOLESTEROL INCREASED [None]
  - GLOSSODYNIA [None]
  - PNEUMONIA [None]
  - TONGUE DISORDER [None]
